FAERS Safety Report 7898094-4 (Version None)
Quarter: 2011Q4

REPORT INFORMATION
  Report Type: 
  Country: None (occurrence: None)
  Receive Date: 20111107
  Receipt Date: 20111028
  Transmission Date: 20120403
  Serious: Yes (Hospitalization)
  Sender: FDA-Public Use
  Company Number: GB-ASTRAZENECA-2011SE59660

PATIENT
  Age: 30763 Day
  Sex: Male
  Weight: 80.7 kg

DRUGS (3)
  1. CARBOPLATIN [Suspect]
     Indication: TRANSITIONAL CELL CARCINOMA METASTATIC
     Dosage: OVER 30 MINUTES
     Route: 042
     Dates: start: 20110616, end: 20110908
  2. GEMCITABINE [Suspect]
     Indication: TRANSITIONAL CELL CARCINOMA METASTATIC
     Dosage: 2000 MG FOR 30 MINUTES ON DAY 1 AND 8 OF 21 DAYS CYCLE
     Route: 042
     Dates: start: 20110616, end: 20110908
  3. VANDETANIB [Suspect]
     Indication: TRANSITIONAL CELL CARCINOMA METASTATIC
     Dosage: DAILY
     Route: 048
     Dates: start: 20110616, end: 20110802

REACTIONS (2)
  - ERYTHEMA [None]
  - SWELLING FACE [None]
